FAERS Safety Report 11092417 (Version 1)
Quarter: 2015Q2

REPORT INFORMATION
  Report Type: Spontaneous
  Country: ES (occurrence: ES)
  Receive Date: 20150506
  Receipt Date: 20150506
  Transmission Date: 20150821
  Serious: Yes (Death, Hospitalization)
  Sender: FDA-Public Use
  Company Number: ES-BRISTOL-MYERS SQUIBB COMPANY-BMS-2015-026566

PATIENT
  Age: 79 Year
  Sex: Female

DRUGS (1)
  1. ORENCIA [Suspect]
     Active Substance: ABATACEPT
     Indication: RHEUMATOID ARTHRITIS
     Dosage: UNK, Q4WK
     Route: 042
     Dates: start: 20131118, end: 20141215

REACTIONS (3)
  - Pneumonia [Recovering/Resolving]
  - Cardiac failure [Fatal]
  - Pyrexia [Unknown]

NARRATIVE: CASE EVENT DATE: 20141223
